FAERS Safety Report 5290618-9 (Version None)
Quarter: 2007Q2

REPORT INFORMATION
  Report Type: 
  Country: None (occurrence: None)
  Receive Date: 20070405
  Receipt Date: 20070405
  Transmission Date: 20071010
  Serious: Yes (Life-Threatening)
  Sender: FDA-Public Use
  Company Number: None

PATIENT
  Age: 9 Week
  Sex: Male
  Weight: 1.3 kg

DRUGS (2)
  1. POTASSIUM CHLORIDE [Suspect]
     Indication: HYPOKALAEMIA
     Dosage: 1.3 MEQ + 6 MEQ
     Dates: start: 20070203
  2. TPN [Concomitant]

REACTIONS (2)
  - CARDIAC ARREST [None]
  - HYPERKALAEMIA [None]
